FAERS Safety Report 6140503-5 (Version None)
Quarter: 2009Q1

REPORT INFORMATION
  Report Type: 
  Country: None (occurrence: None)
  Receive Date: 20090331
  Receipt Date: 20090323
  Transmission Date: 20090719
  Serious: Yes (Other)
  Sender: FDA-Public Use
  Company Number: CHPA2009US07621

PATIENT
  Age: 61 Year
  Sex: Female
  Weight: 81.6 kg

DRUGS (6)
  1. BENEFIBER W/WHEAT DEXTRIN (NCH) (WHEAT DEXTRIN) POWDER [Suspect]
     Dosage: 1 TSP, BID, ORAL
     Route: 048
     Dates: start: 20090120, end: 20090201
  2. METHADONE HCL [Concomitant]
  3. ACETAMINOPHEN [Concomitant]
  4. DIAZEPAM [Concomitant]
  5. NEURONTIN [Concomitant]
  6. BACLOFEN [Concomitant]

REACTIONS (4)
  - DEHYDRATION [None]
  - DIARRHOEA [None]
  - NAUSEA [None]
  - VOMITING [None]
